FAERS Safety Report 6877810-4 (Version None)
Quarter: 2010Q3

REPORT INFORMATION
  Report Type: 
  Country: None (occurrence: None)
  Receive Date: 20100727
  Receipt Date: 20100504
  Transmission Date: 20110219
  Serious: No
  Sender: FDA-Public Use
  Company Number: US-ABBOTT-10P-163-0642978-00

PATIENT
  Sex: Male
  Weight: 93.07 kg

DRUGS (8)
  1. SYNTHROID [Suspect]
     Indication: HYPOTHYROIDISM
     Route: 048
     Dates: start: 20080101
  2. CARBIDOPA AND LEVODOPA [Suspect]
     Indication: PARKINSON'S DISEASE
     Dosage: 25/100 MG 3 IN 1 D
     Route: 048
     Dates: start: 20100201, end: 20100429
  3. CARBIDOPA AND LEVODOPA [Suspect]
     Dosage: 25/100MG 4 IN 1 D
     Dates: start: 20100430
  4. AZILECT [Suspect]
     Indication: PARKINSON'S DISEASE
     Route: 048
     Dates: start: 20100201
  5. CRESTOR [Concomitant]
     Indication: BLOOD CHOLESTEROL INCREASED
     Route: 048
  6. ASPIRIN [Concomitant]
     Indication: PRODUCT USED FOR UNKNOWN INDICATION
     Route: 048
  7. FISH OIL [Concomitant]
     Indication: BLOOD CHOLESTEROL INCREASED
  8. VITAMINS [Concomitant]
     Indication: VITAMIN SUPPLEMENTATION
     Route: 048

REACTIONS (5)
  - FATIGUE [None]
  - FLUID RETENTION [None]
  - HYPOKINESIA [None]
  - PARKINSON'S DISEASE [None]
  - PERIPHERAL VASCULAR DISORDER [None]
